FAERS Safety Report 4961750-1 (Version None)
Quarter: 2006Q2

REPORT INFORMATION
  Report Type: 
  Country: None (occurrence: None)
  Receive Date: 20060404
  Receipt Date: 20060318
  Transmission Date: 20061013
  Serious: Yes (Hospitalization, Other)
  Sender: FDA-Public Use
  Company Number: PHEH2006US03619

PATIENT
  Age: 69 Year
  Sex: Male

DRUGS (1)
  1. ZELNORM [Suspect]
     Indication: IRRITABLE BOWEL SYNDROME
     Dosage: UNK
     Route: 048
     Dates: start: 20060201, end: 20060318

REACTIONS (3)
  - ASTHENIA [None]
  - BLOOD PRODUCT TRANSFUSION [None]
  - RECTAL HAEMORRHAGE [None]
